FAERS Safety Report 7267804-1 (Version None)
Quarter: 2011Q1

REPORT INFORMATION
  Report Type: 
  Country: None (occurrence: None)
  Receive Date: 20110201
  Receipt Date: 20110124
  Transmission Date: 20110831
  Serious: Yes (Hospitalization)
  Sender: FDA-Public Use
  Company Number: B0629708A

PATIENT
  Sex: Female
  Weight: 48 kg

DRUGS (4)
  1. TYKERB [Suspect]
     Dosage: 1250MG PER DAY
     Route: 048
     Dates: start: 20090623
  2. DIPOTASSIUM GLYCYRRHIZINATE [Concomitant]
     Indication: SKIN DISORDER
     Route: 061
  3. XELODA [Suspect]
     Dosage: 3000MG PER DAY
     Route: 048
  4. PYDOXAL [Concomitant]
     Route: 048

REACTIONS (4)
  - PYREXIA [None]
  - MUCOUS MEMBRANE DISORDER [None]
  - INFECTION [None]
  - DIARRHOEA [None]
